FAERS Safety Report 8573855-7 (Version None)
Quarter: 2012Q3

REPORT INFORMATION
  Report Type: 
  Country: None (occurrence: None)
  Receive Date: 20120806
  Receipt Date: 20111114
  Transmission Date: 20120928
  Serious: No
  Sender: FDA-Public Use
  Company Number: US-GLAXOSMITHKLINE-A0953126A

PATIENT
  Sex: Male

DRUGS (2)
  1. SINGULAIR [Concomitant]
  2. FLUTICASONE PROPIONATE [Suspect]
     Indication: ASTHMA
     Route: 055

REACTIONS (1)
  - ARTHRALGIA [None]
